FAERS Safety Report 23308158 (Version 2)
Quarter: 2024Q1

REPORT INFORMATION
  Report Type: Spontaneous
  Country: GB (occurrence: GB)
  Receive Date: 20231218
  Receipt Date: 20240103
  Transmission Date: 20240410
  Serious: Yes (Death, Disabling, Other)
  Sender: FDA-Public Use
  Company Number: None

PATIENT
  Sex: Male

DRUGS (8)
  1. OXALIPLATIN [Suspect]
     Active Substance: OXALIPLATIN
     Indication: Oesophageal carcinoma
     Dosage: EVERY 2 WEEKS
     Dates: start: 20211118, end: 20220108
  2. DOCETAXEL [Suspect]
     Active Substance: DOCETAXEL\DOCETAXEL ANHYDROUS
     Indication: Oesophageal carcinoma
     Dosage: EVERY 2 WEEKS
     Dates: start: 20211118, end: 20220108
  3. FLUOROURACIL [Suspect]
     Active Substance: FLUOROURACIL
     Indication: Oesophageal carcinoma
     Dosage: EVERY 2 WEEKS
     Dates: start: 20211118, end: 20220108
  4. LEUCOVORIN CALCIUM [Suspect]
     Active Substance: LEUCOVORIN CALCIUM
     Indication: Oesophageal carcinoma
     Dosage: EVERY 2 WEEKS
     Dates: start: 20211118, end: 20220108
  5. FYBOGEL [Concomitant]
     Active Substance: HERBALS\PLANTAGO OVATA SEED
     Indication: Functional gastrointestinal disorder
  6. FILGRASTIM [Concomitant]
     Active Substance: FILGRASTIM
     Dosage: UNK
     Dates: end: 20220115
  7. DEXAMETHASONE [Concomitant]
     Active Substance: DEXAMETHASONE
  8. METOCLOPRAMIDE HYDROCHLORIDE [Concomitant]
     Active Substance: METOCLOPRAMIDE HYDROCHLORIDE

REACTIONS (4)
  - Neoplasm progression [Fatal]
  - Hypoacusis [Unknown]
  - Feeling cold [Unknown]
  - Off label use [Unknown]

NARRATIVE: CASE EVENT DATE: 20211118
